FAERS Safety Report 20217039 (Version 1)
Quarter: 2021Q4

REPORT INFORMATION
  Report Type: Spontaneous
  Country: DE (occurrence: DE)
  Receive Date: 20211222
  Receipt Date: 20211222
  Transmission Date: 20220303
  Serious: Yes (Hospitalization)
  Sender: FDA-Public Use
  Company Number: None

PATIENT
  Age: 25 Year
  Sex: Female
  Weight: 66 kg

DRUGS (1)
  1. PANTOPRAZOLE [Suspect]
     Active Substance: PANTOPRAZOLE
     Indication: Product used for unknown indication
     Dosage: UNKNOWN
     Route: 048

REACTIONS (7)
  - Product prescribing error [Unknown]
  - Nausea [Unknown]
  - Abdominal pain lower [Unknown]
  - Abdominal pain [Unknown]
  - Vomiting [Unknown]
  - Abdominal pain upper [Unknown]
  - Exposure during pregnancy [Unknown]
